FAERS Safety Report 8978353 (Version 1)
Quarter: 2012Q4

REPORT INFORMATION
  Report Type: Spontaneous
  Country: US (occurrence: None)
  Receive Date: 20121218
  Receipt Date: 20121218
  Transmission Date: 20130627
  Serious: No
  Sender: FDA-Public Use
  Company Number: None

PATIENT
  Sex: Female
  Weight: 68.49 kg

DRUGS (2)
  1. AZITHROMYCIN [Suspect]
     Indication: BRONCHIAL INFECTION
     Dosage: 2 TABS Day 1 Oral
     Route: 048
     Dates: start: 20121010, end: 20121016
  2. AZITHROMYCIN [Suspect]
     Indication: BRONCHIAL INFECTION
     Dosage: 1 TAB DAYS 2-5 Oral
     Route: 048

REACTIONS (2)
  - Rash [None]
  - Dyspnoea [None]
